FAERS Safety Report 15159163 (Version 2)
Quarter: 2018Q3

REPORT INFORMATION
  Report Type: Spontaneous
  Country: US (occurrence: US)
  Receive Date: 20180718
  Receipt Date: 20180724
  Transmission Date: 20181010
  Serious: Yes (Other)
  Sender: FDA-Public Use
  Company Number: US-PFIZER INC-2018285851

PATIENT
  Age: 41 Year
  Sex: Male

DRUGS (1)
  1. SILDENAFIL CITRATE. [Suspect]
     Active Substance: SILDENAFIL CITRATE
     Dosage: 3 TO 4 TIMES HIGHER THAN RECOMMENDED DOSE

REACTIONS (2)
  - Overdose [Recovered/Resolved]
  - Acute macular outer retinopathy [Recovered/Resolved]
